FAERS Safety Report 21365138 (Version 1)
Quarter: 2022Q3

REPORT INFORMATION
  Report Type: Other
  Country: US (occurrence: None)
  Receive Date: 20220922
  Receipt Date: 20220922
  Transmission Date: 20221026
  Serious: Yes (Other)
  Sender: FDA-Public Use
  Company Number: US-ROCHE-3180952

PATIENT
  Age: 45 Year
  Sex: Female
  Weight: 68.100 kg

DRUGS (1)
  1. OCREVUS [Suspect]
     Active Substance: OCRELIZUMAB
     Indication: Multiple sclerosis
     Dosage: 600 MG EVERY 6 MONTH
     Route: 042
     Dates: start: 2021

REACTIONS (2)
  - COVID-19 [Not Recovered/Not Resolved]
  - Pneumonia pseudomonal [Unknown]

NARRATIVE: CASE EVENT DATE: 20220818
